FAERS Safety Report 20859461 (Version 3)
Quarter: 2022Q2

REPORT INFORMATION
  Report Type: Spontaneous
  Country: TW (occurrence: TW)
  Receive Date: 20220523
  Receipt Date: 20220527
  Transmission Date: 20220721
  Serious: Yes (Hospitalization)
  Sender: FDA-Public Use
  Company Number: TW-CSTONE PHARMACEUTICALS (SUZHOU) CO., LTD.-2022TW00498

PATIENT
  Sex: Female

DRUGS (2)
  1. AYVAKIT [Suspect]
     Active Substance: AVAPRITINIB
     Indication: Systemic mastocytosis
     Route: 048
     Dates: start: 20220506, end: 20220509
  2. AYVAKIT [Suspect]
     Active Substance: AVAPRITINIB
     Dosage: 200 MILLIGRAM, QD
     Route: 048
     Dates: start: 20220511

REACTIONS (2)
  - Rash [Recovered/Resolved]
  - Intentional product use issue [Unknown]

NARRATIVE: CASE EVENT DATE: 20220506
